FAERS Safety Report 8377280-3 (Version None)
Quarter: 2012Q2

REPORT INFORMATION
  Report Type: 
  Country: None (occurrence: None)
  Receive Date: 20120522
  Receipt Date: 20120517
  Transmission Date: 20120825
  Serious: Yes (Other)
  Sender: FDA-Public Use
  Company Number: ZA-PFIZER INC-2012120938

PATIENT
  Age: 69 Year
  Sex: Male

DRUGS (1)
  1. LYRICA [Suspect]
     Dosage: UNK
     Route: 048
     Dates: start: 20120101, end: 20120101

REACTIONS (4)
  - BURNING SENSATION [None]
  - PARAESTHESIA [None]
  - VISION BLURRED [None]
  - VERTIGO [None]
